FAERS Safety Report 6503877-9 (Version None)
Quarter: 2009Q4

REPORT INFORMATION
  Report Type: 
  Country: None (occurrence: None)
  Receive Date: 20091217
  Receipt Date: 20091209
  Transmission Date: 20100525
  Serious: Yes (Hospitalization)
  Sender: FDA-Public Use
  Company Number: B0614401A

PATIENT
  Sex: Male

DRUGS (4)
  1. COMBIVIR [Suspect]
     Indication: DRUG USE FOR UNKNOWN INDICATION
     Route: 048
     Dates: start: 19960101, end: 20090819
  2. CRIXIVAN [Suspect]
     Indication: DRUG USE FOR UNKNOWN INDICATION
     Route: 048
     Dates: start: 19961101, end: 20090819
  3. INTELENCE [Concomitant]
     Route: 048
     Dates: start: 20090820
  4. TRUVADA [Concomitant]
     Route: 048
     Dates: start: 20090820

REACTIONS (2)
  - CALCULUS URETHRAL [None]
  - RENAL COLIC [None]
